FAERS Safety Report 5230231-2 (Version None)
Quarter: 2007Q1

REPORT INFORMATION
  Report Type: 
  Country: None (occurrence: None)
  Receive Date: 20070206
  Receipt Date: 20061020
  Transmission Date: 20070707
  Serious: No
  Sender: FDA-Public Use
  Company Number: US-GLAXOSMITHKLINE-A0623242A

PATIENT
  Age: 58 Year
  Sex: Female

DRUGS (6)
  1. PAXIL CR [Suspect]
     Indication: DEPRESSION
     Dosage: 37.5TAB PER DAY
     Route: 048
  2. ROBAXIN [Concomitant]
  3. KLONOPIN [Concomitant]
  4. PROTONIX [Concomitant]
  5. AMBIEN [Concomitant]
  6. MAXZIDE [Concomitant]

REACTIONS (4)
  - ANGER [None]
  - ANXIETY [None]
  - DEPRESSION [None]
  - HEADACHE [None]
